FAERS Safety Report 11690985 (Version 2)
Quarter: 2015Q4

REPORT INFORMATION
  Report Type: Spontaneous
  Country: FR (occurrence: FR)
  Receive Date: 20151102
  Receipt Date: 20151113
  Transmission Date: 20160304
  Serious: Yes (Hospitalization, Other)
  Sender: FDA-Public Use
  Company Number: FR-009507513-1510FRA013664

PATIENT
  Age: 84 Year
  Sex: Male

DRUGS (5)
  1. POLYETHYLENE GLYCOL 3350. [Suspect]
     Active Substance: POLYETHYLENE GLYCOL 3350
     Indication: PRODUCT USED FOR UNKNOWN INDICATION
     Dosage: UNK
     Route: 048
  2. RISPERDAL [Suspect]
     Active Substance: RISPERIDONE
     Dosage: 1,5 MG QD
     Route: 048
  3. MEPROBAMATE. [Suspect]
     Active Substance: MEPROBAMATE
     Dosage: 1 DF, QD
     Route: 048
  4. NITROGLYCERIN. [Suspect]
     Active Substance: NITROGLYCERIN
     Dosage: 10 MG, QD (PER 24 HOURS)
     Route: 062
  5. ASPIRIN LYSINE [Suspect]
     Active Substance: ASPIRIN LYSINE
     Dosage: 75 MG, QD

REACTIONS (7)
  - Iatrogenic injury [Unknown]
  - Hypoxia [Unknown]
  - Agitation [Unknown]
  - Blood bicarbonate abnormal [Unknown]
  - Dyspnoea [Unknown]
  - Hyperhidrosis [Unknown]
  - Seizure [Unknown]
